FAERS Safety Report 5520092-6 (Version None)
Quarter: 2007Q4

REPORT INFORMATION
  Report Type: 
  Country: None (occurrence: None)
  Receive Date: 20071116
  Receipt Date: 20071115
  Transmission Date: 20080405
  Serious: Yes (Hospitalization, Other)
  Sender: FDA-Public Use
  Company Number: CH-SHR-CH-2007-033335

PATIENT
  Age: 76 Year
  Sex: Female

DRUGS (4)
  1. SOTALOL HYDROCHLORIDE [Suspect]
     Dosage: 160 MG, 2X/DAY
     Route: 048
     Dates: start: 20070130, end: 20070718
  2. NEXIUM [Concomitant]
     Indication: PROPHYLAXIS
     Dosage: 40 MG, 1X/DAY
     Route: 048
  3. COSAAR PLUS [Concomitant]
     Indication: ESSENTIAL HYPERTENSION
     Dosage: UNK, 2X/DAY
     Route: 048
  4. SINTROM [Concomitant]
     Dosage: UNK, AS REQ'D
     Route: 048

REACTIONS (8)
  - ASTHENIA [None]
  - DYSPNOEA [None]
  - ELECTROCARDIOGRAM QT PROLONGED [None]
  - MALAISE [None]
  - PYELONEPHRITIS [None]
  - RENAL FAILURE [None]
  - TORSADE DE POINTES [None]
  - VENTRICULAR TACHYCARDIA [None]
